FAERS Safety Report 16801912 (Version 8)
Quarter: 2022Q1

REPORT INFORMATION
  Report Type: Other
  Country: JP (occurrence: JP)
  Receive Date: 20190912
  Receipt Date: 20220302
  Transmission Date: 20220424
  Serious: Yes (Hospitalization)
  Sender: FDA-Public Use
  Company Number: JP-CHUGAI-A2019028560ROCHE

PATIENT
  Age: 18 Year
  Sex: Female
  Weight: 59 kg

DRUGS (21)
  1. TOCILIZUMAB [Suspect]
     Active Substance: TOCILIZUMAB
     Indication: Still^s disease
     Dosage: DATE OF THE MOST RECENT DOSE OF TOCILIZUMAB SHE RECEIVED PRIOR TO EVENTS ONSET: 25/JUN/2019
     Route: 041
     Dates: start: 20190625
  2. TOCILIZUMAB [Suspect]
     Active Substance: TOCILIZUMAB
     Route: 042
  3. ALFACALCIDOL [Concomitant]
     Active Substance: ALFACALCIDOL
     Route: 048
  4. SULFAMETHOXAZOLE\TRIMETHOPRIM [Concomitant]
     Active Substance: SULFAMETHOXAZOLE\TRIMETHOPRIM
     Dosage: DOSAGE IS UNCERTAIN.
     Route: 048
  5. NEORAL [Concomitant]
     Active Substance: CYCLOSPORINE
     Route: 048
  6. LANSOPRAZOLE [Concomitant]
     Active Substance: LANSOPRAZOLE
     Route: 048
  7. BIO-THREE [Concomitant]
     Active Substance: HERBALS
     Route: 048
  8. REBAMIPIDE [Concomitant]
     Active Substance: REBAMIPIDE
     Route: 048
  9. DEXAMETHASONE SODIUM PHOSPHATE [Concomitant]
     Active Substance: DEXAMETHASONE SODIUM PHOSPHATE
     Dosage: 10:00,18:00
     Route: 065
     Dates: start: 20190617, end: 20190619
  10. DEXAMETHASONE SODIUM PHOSPHATE [Concomitant]
     Active Substance: DEXAMETHASONE SODIUM PHOSPHATE
     Dosage: 10:00,18:00
     Route: 065
     Dates: start: 20190620, end: 20190623
  11. DEXAMETHASONE SODIUM PHOSPHATE [Concomitant]
     Active Substance: DEXAMETHASONE SODIUM PHOSPHATE
     Dosage: 10:00,18:00
     Route: 065
     Dates: start: 20190624, end: 20190630
  12. DEXAMETHASONE SODIUM PHOSPHATE [Concomitant]
     Active Substance: DEXAMETHASONE SODIUM PHOSPHATE
     Dosage: 10:00,18:00
     Route: 065
     Dates: start: 20190704, end: 20190708
  13. DEXAMETHASONE SODIUM PHOSPHATE [Concomitant]
     Active Substance: DEXAMETHASONE SODIUM PHOSPHATE
     Dosage: 10:00,18:00
     Route: 065
     Dates: start: 20190709, end: 20190711
  14. DEXAMETHASONE SODIUM PHOSPHATE [Concomitant]
     Active Substance: DEXAMETHASONE SODIUM PHOSPHATE
     Dosage: 10:00,18:00
     Route: 065
     Dates: start: 20190712, end: 20190715
  15. HEPARIN SODIUM [Concomitant]
     Active Substance: HEPARIN SODIUM
     Route: 065
  16. GANCICLOVIR [Concomitant]
     Active Substance: GANCICLOVIR
     Dosage: 10:00,18:00
     Route: 041
  17. SENNOSIDES [Concomitant]
     Active Substance: SENNOSIDES
     Dosage: 14:00,11:00
     Route: 048
  18. PREDNISOLONE [Concomitant]
     Active Substance: PREDNISOLONE
     Dates: start: 20190611, end: 20190613
  19. CYCLOSPORINE [Concomitant]
     Active Substance: CYCLOSPORINE
  20. METHOTREXATE [Concomitant]
     Active Substance: METHOTREXATE
  21. GANCICLOVIR [Concomitant]
     Active Substance: GANCICLOVIR

REACTIONS (3)
  - Haemophagocytic lymphohistiocytosis [Recovering/Resolving]
  - Platelet count decreased [Recovering/Resolving]
  - Off label use [Unknown]

NARRATIVE: CASE EVENT DATE: 20190625
